FAERS Safety Report 16580939 (Version 2)
Quarter: 2021Q2

REPORT INFORMATION
  Report Type: Spontaneous
  Country: DK (occurrence: DK)
  Receive Date: 20190716
  Receipt Date: 20210519
  Transmission Date: 20210716
  Serious: No
  Sender: FDA-Public Use
  Company Number: DK-GLAXOSMITHKLINE-DK2019EME118135

PATIENT
  Sex: Female

DRUGS (1)
  1. NICOTINELL [Suspect]
     Active Substance: NICOTINE
     Indication: SMOKING CESSATION THERAPY
     Dosage: UNK

REACTIONS (2)
  - Nicotine dependence [Unknown]
  - Product use issue [Unknown]
